FAERS Safety Report 9349717 (Version 1)
Quarter: 2013Q2

REPORT INFORMATION
  Report Type: Spontaneous
  Country: FR (occurrence: FR)
  Receive Date: 20130614
  Receipt Date: 20130614
  Transmission Date: 20140414
  Serious: Yes (Death, Hospitalization)
  Sender: FDA-Public Use
  Company Number: FR-ROCHE-1235632

PATIENT
  Age: 17 Year
  Sex: Male

DRUGS (11)
  1. ROCEPHINE [Suspect]
     Indication: FEBRILE INFECTION
     Route: 065
     Dates: start: 20130402, end: 20130407
  2. DIHYDANTOIN [Suspect]
     Indication: CONVULSION
     Route: 065
     Dates: start: 20130318, end: 20130412
  3. KEPPRA [Suspect]
     Indication: CONVULSION
     Route: 065
     Dates: start: 20130321, end: 201304
  4. AMOXICILLIN [Suspect]
     Indication: BLOOD CULTURE POSITIVE
     Route: 065
     Dates: start: 20130406, end: 20130411
  5. SPECIAFOLDINE [Concomitant]
     Route: 065
  6. DUPHALAC [Concomitant]
     Route: 065
  7. VITAMIN B11 [Concomitant]
  8. VITAMIN B6 [Concomitant]
  9. ALDACTONE (FRANCE) [Concomitant]
     Route: 065
  10. AVLOCARDYL [Concomitant]
     Route: 065
  11. DEPAKINE [Concomitant]

REACTIONS (5)
  - Rash maculo-papular [Fatal]
  - Face oedema [Fatal]
  - Drug reaction with eosinophilia and systemic symptoms [Fatal]
  - Stevens-Johnson syndrome [Fatal]
  - Eosinophilia [Fatal]
